FAERS Safety Report 13190513 (Version 2)
Quarter: 2017Q2

REPORT INFORMATION
  Report Type: Report from Study
  Country: BR (occurrence: BR)
  Receive Date: 20170206
  Receipt Date: 20170413
  Transmission Date: 20170830
  Serious: Yes (Hospitalization, Other)
  Sender: FDA-Public Use
  Company Number: PHHY2016BR179761

PATIENT
  Age: 25 Year
  Sex: Female
  Weight: 43 kg

DRUGS (6)
  1. COSENTYX [Suspect]
     Active Substance: SECUKINUMAB
     Dosage: 300 MG, QMO
     Route: 058
     Dates: start: 20161124
  2. COSENTYX [Suspect]
     Active Substance: SECUKINUMAB
     Dosage: 300 MG, QW
     Route: 058
     Dates: start: 20161103
  3. COSENTYX [Suspect]
     Active Substance: SECUKINUMAB
     Dosage: 300 MG, QMO
     Route: 058
     Dates: start: 20161227
  4. COSENTYX [Suspect]
     Active Substance: SECUKINUMAB
     Indication: PSORIATIC ARTHROPATHY
     Dosage: 300 MG, QW
     Route: 058
     Dates: start: 20161026
  5. COSENTYX [Suspect]
     Active Substance: SECUKINUMAB
     Dosage: 300 MG, QW
     Route: 058
     Dates: start: 20161117
  6. COSENTYX [Suspect]
     Active Substance: SECUKINUMAB
     Dosage: 300 MG, QW
     Route: 058
     Dates: start: 20161110

REACTIONS (5)
  - Pyrexia [Recovered/Resolved with Sequelae]
  - Cough [Recovered/Resolved with Sequelae]
  - Immunodeficiency [Unknown]
  - Pneumonia [Recovered/Resolved]
  - Incorrect dose administered [Unknown]

NARRATIVE: CASE EVENT DATE: 20161221
